FAERS Safety Report 7224714-3 (Version None)
Quarter: 2011Q1

REPORT INFORMATION
  Report Type: 
  Country: None (occurrence: None)
  Receive Date: 20110104
  Receipt Date: 20101220
  Transmission Date: 20110831
  Serious: Yes (Disabling)
  Sender: FDA-Public Use
  Company Number: ESP10000152

PATIENT
  Age: 81 Year
  Sex: Female
  Weight: 60 kg

DRUGS (5)
  1. FORZAAR /01284801/ (HYDROCHLOROTHIAZIDE, LOSARTAN POTASSIUM) [Concomitant]
  2. LORAZEPAM [Concomitant]
  3. NORVASC [Concomitant]
  4. ACREL (RISEDRONATE SODIUM) TABLET, 75MG [Suspect]
     Indication: OSTEOPOROSIS
     Dosage: UNK MG, 2 CD/MONTH, ORAL
     Route: 048
     Dates: start: 20101001, end: 20101101
  5. ENALAPRIL MALEATE [Concomitant]

REACTIONS (6)
  - PHOTOPHOBIA [None]
  - LACRIMATION INCREASED [None]
  - EYE DISORDER [None]
  - EFFUSION [None]
  - EYE PAIN [None]
  - OCULAR HYPERAEMIA [None]
